FAERS Safety Report 4384258-3 (Version None)
Quarter: 2004Q2

REPORT INFORMATION
  Report Type: 
  Country: None (occurrence: None)
  Receive Date: 20040624
  Receipt Date: 20040614
  Transmission Date: 20050107
  Serious: Yes (Hospitalization)
  Sender: FDA-Public Use
  Company Number: FR-MERCK-0406USA01559

PATIENT
  Age: 83 Year
  Sex: Female

DRUGS (7)
  1. ACETAMINOPHEN AND PROPOXYPHENE HYDROCHLORIDE [Concomitant]
     Route: 048
  2. OLMIFON [Suspect]
     Indication: MALAISE
     Route: 048
     Dates: end: 20040216
  3. OLMIFON [Suspect]
     Indication: FATIGUE
     Route: 048
     Dates: end: 20040216
  4. PLAVIX [Concomitant]
     Route: 048
  5. OGAST [Suspect]
     Route: 048
     Dates: end: 20040216
  6. NICORANDIL [Concomitant]
     Route: 048
  7. ZOCOR [Suspect]
     Route: 048
     Dates: end: 20040216

REACTIONS (2)
  - CONFUSIONAL STATE [None]
  - FALL [None]
